FAERS Safety Report 10886891 (Version 1)
Quarter: 2015Q1

REPORT INFORMATION
  Report Type: Spontaneous
  Country: US (occurrence: US)
  Receive Date: 20150304
  Receipt Date: 20150304
  Transmission Date: 20150721
  Serious: No
  Sender: FDA-Public Use
  Company Number: US-PFIZER INC-2015073320

PATIENT
  Sex: Female

DRUGS (2)
  1. RIDAMOL [Suspect]
     Active Substance: DIPYRIDAMOLE
     Indication: ATRIAL FIBRILLATION
     Dosage: UNK
  2. INDERAL [Suspect]
     Active Substance: PROPRANOLOL HYDROCHLORIDE
     Indication: ATRIAL FIBRILLATION
     Dosage: UNK

REACTIONS (1)
  - Drug effect incomplete [Unknown]
